FAERS Safety Report 17295045 (Version 1)
Quarter: 2020Q1

REPORT INFORMATION
  Report Type: Spontaneous
  Country: US (occurrence: US)
  Receive Date: 20200121
  Receipt Date: 20200121
  Transmission Date: 20200409
  Serious: Yes (Other)
  Sender: FDA-Public Use
  Company Number: US-PFIZER INC-2020010714

PATIENT
  Age: 77 Year
  Sex: Male
  Weight: 83.91 kg

DRUGS (1)
  1. ROBITUSSIN MAXIMUM STRENGTH COUGH PLUS CHEST CONGESTION DM [Suspect]
     Active Substance: DEXTROMETHORPHAN HYDROBROMIDE\GUAIFENESIN
     Indication: NASOPHARYNGITIS
     Dosage: 20 MG, EVERY 4 HOURS
     Route: 048
     Dates: start: 20200106

REACTIONS (2)
  - Urinary retention [Unknown]
  - Dysuria [Unknown]
